FAERS Safety Report 16614010 (Version 4)
Quarter: 2020Q2

REPORT INFORMATION
  Report Type: Spontaneous
  Country: JP (occurrence: JP)
  Receive Date: 20190723
  Receipt Date: 20200616
  Transmission Date: 20200713
  Serious: Yes (Hospitalization, Other)
  Sender: FDA-Public Use
  Company Number: JP-SA-2019SA195404

PATIENT

DRUGS (5)
  1. ELPLAT [Suspect]
     Active Substance: OXALIPLATIN
     Indication: COLON CANCER
     Dosage: ONCE IN 2 WEEK
     Route: 041
  2. BEVACIZUMAB. [Concomitant]
     Active Substance: BEVACIZUMAB
  3. LEVOFOLINATE CALCIUM [Suspect]
     Active Substance: LEVOLEUCOVORIN CALCIUM
     Indication: COLON CANCER
     Dosage: UNK
     Route: 041
  4. IRINOTECAN HYDROCHLORIDE. [Concomitant]
     Active Substance: IRINOTECAN HYDROCHLORIDE
  5. FLUOROURACIL. [Concomitant]
     Active Substance: FLUOROURACIL

REACTIONS (4)
  - Ascites [Unknown]
  - Venoocclusive liver disease [Recovered/Resolved]
  - Thrombocytopenia [Recovered/Resolved]
  - Splenomegaly [Unknown]
